FAERS Safety Report 8131933-0 (Version None)
Quarter: 2012Q1

REPORT INFORMATION
  Report Type: 
  Country: None (occurrence: None)
  Receive Date: 20120213
  Receipt Date: 20120203
  Transmission Date: 20120608
  Serious: Yes (Hospitalization)
  Sender: FDA-Public Use
  Company Number: US-CELGENEUS-163-21880-11111767

PATIENT
  Sex: Male

DRUGS (8)
  1. CALCIUM CARBONATE [Concomitant]
     Dosage: 1.5 GRAM
     Route: 048
  2. NORCO [Concomitant]
     Dosage: 10/325
     Route: 048
  3. VALTREX [Concomitant]
     Dosage: 1000 MILLIGRAM
     Route: 065
  4. AMBIEN [Concomitant]
     Dosage: 10 MILLIGRAM
     Route: 065
  5. REVLIMID [Suspect]
     Indication: MULTIPLE MYELOMA
     Dosage: 10 MILLIGRAM
     Route: 048
     Dates: start: 20101025
  6. DECADRON [Concomitant]
     Indication: MULTIPLE MYELOMA
     Route: 065
     Dates: start: 20111001
  7. KEPPRA [Concomitant]
     Dosage: 1000 MILLIGRAM
     Route: 065
  8. ASPIRIN [Concomitant]
     Dosage: 325 MILLIGRAM
     Route: 065

REACTIONS (2)
  - ASTHMA [None]
  - PNEUMONIA [None]
